FAERS Safety Report 8807999 (Version 2)
Quarter: 2012Q4

REPORT INFORMATION
  Report Type: 
  Country: US (occurrence: US)
  Receive Date: 20120925
  Receipt Date: 20121016
  Transmission Date: 20130627
  Serious: Yes (Death)
  Sender: FDA-Public Use
  Company Number: US-ROCHE-1128562

PATIENT
  Sex: Female

DRUGS (1)
  1. AVASTIN [Suspect]
     Indication: COLON CANCER
     Route: 042
     Dates: start: 20050420, end: 20060626

REACTIONS (6)
  - Death [Fatal]
  - Fatigue [Unknown]
  - Anxiety [Unknown]
  - Decreased appetite [Unknown]
  - Alopecia [Unknown]
  - Depression [Unknown]
